FAERS Safety Report 9502765 (Version 3)
Quarter: 2015Q2

REPORT INFORMATION
  Report Type: Spontaneous
  Country: US (occurrence: US)
  Receive Date: 20130906
  Receipt Date: 20150428
  Transmission Date: 20150821
  Serious: Yes (Congenital Anomaly, Other)
  Sender: FDA-Public Use
  Company Number: US-JNJFOC-JAUSA14679

PATIENT
  Age: 0 Day
  Sex: Male

DRUGS (1)
  1. VERMOX [Suspect]
     Active Substance: MEBENDAZOLE
     Indication: INFECTION PROPHYLAXIS
     Route: 064

REACTIONS (5)
  - Foetal exposure during pregnancy [Recovered/Resolved]
  - Hypotonia [Recovered/Resolved with Sequelae]
  - Micrognathia [Recovered/Resolved with Sequelae]
  - Congenital joint malformation [Recovered/Resolved with Sequelae]
  - Cryptorchism [Recovered/Resolved with Sequelae]

NARRATIVE: CASE EVENT DATE: 19940518
